FAERS Safety Report 4420472-6 (Version None)
Quarter: 2004Q3

REPORT INFORMATION
  Report Type: 
  Country: None (occurrence: None)
  Receive Date: 20040809
  Receipt Date: 20040308
  Transmission Date: 20050211
  Serious: No
  Sender: FDA-Public Use
  Company Number: US-GLAXOSMITHKLINE-A0501592A

PATIENT
  Age: 27 Year
  Sex: Male
  Weight: 70 kg

DRUGS (2)
  1. PAXIL CR [Suspect]
     Indication: DEPRESSION
     Dosage: 12.5MG PER DAY
     Route: 048
     Dates: start: 20040225
  2. ALCOHOL [Concomitant]

REACTIONS (8)
  - ABNORMAL DREAMS [None]
  - ANXIETY [None]
  - DELUSION [None]
  - HALLUCINATION [None]
  - HEART RATE IRREGULAR [None]
  - MYDRIASIS [None]
  - PARANOIA [None]
  - SCHIZOPHRENIA [None]
